FAERS Safety Report 9380194 (Version 1)
Quarter: 2013Q3

REPORT INFORMATION
  Report Type: Spontaneous
  Country: US (occurrence: US)
  Receive Date: 20130702
  Receipt Date: 20130702
  Transmission Date: 20140515
  Serious: Yes (Hospitalization, Other)
  Sender: FDA-Public Use
  Company Number: PHEH2013US004274

PATIENT
  Sex: Female
  Weight: 94.34 kg

DRUGS (4)
  1. AFINITOR [Suspect]
     Indication: BREAST CANCER METASTATIC
     Dosage: 10 MG, QD
     Route: 048
     Dates: start: 201211
  2. AFINITOR [Suspect]
     Dosage: 5 MG, QD
     Route: 048
     Dates: end: 20130508
  3. ZOMETA [Suspect]
  4. EXEMESTANE [Suspect]
     Indication: BREAST CANCER
     Dosage: 25 MG, QD
     Route: 048

REACTIONS (16)
  - Cellulitis [Recovered/Resolved]
  - Erythema [Unknown]
  - Pain [Unknown]
  - Rash [Recovered/Resolved]
  - Pruritus [Recovered/Resolved]
  - Asthenia [Recovered/Resolved]
  - Pancytopenia [Recovered/Resolved]
  - Blister [Unknown]
  - Lymphoedema [Unknown]
  - Tooth infection [Recovered/Resolved]
  - Toothache [Recovered/Resolved]
  - Bone pain [Unknown]
  - Chills [Unknown]
  - Malaise [Unknown]
  - Myalgia [Unknown]
  - Pyrexia [Unknown]
